FAERS Safety Report 6730284-6 (Version None)
Quarter: 2010Q2

REPORT INFORMATION
  Report Type: 
  Country: None (occurrence: None)
  Receive Date: 20100513
  Receipt Date: 20100505
  Transmission Date: 20101027
  Serious: Yes (Hospitalization)
  Sender: FDA-Public Use
  Company Number: 20097675

PATIENT
  Sex: Male

DRUGS (1)
  1. LIORESAL [Suspect]
     Indication: MUSCLE SPASTICITY
     Dosage: MCG, DAILY, INTRATHECAL
     Route: 037

REACTIONS (14)
  - AGITATION [None]
  - DEPRESSED LEVEL OF CONSCIOUSNESS [None]
  - DEVICE MATERIAL ISSUE [None]
  - DEVICE POWER SOURCE ISSUE [None]
  - DRUG TOXICITY [None]
  - GAIT DISTURBANCE [None]
  - HYPERHIDROSIS [None]
  - HYPOTONIA [None]
  - INFECTION [None]
  - MUSCLE SPASMS [None]
  - MUSCLE SPASTICITY [None]
  - OVERDOSE [None]
  - RESPIRATORY DEPRESSION [None]
  - WITHDRAWAL SYNDROME [None]
